FAERS Safety Report 16570825 (Version 1)
Quarter: 2019Q3

REPORT INFORMATION
  Report Type: Spontaneous
  Country: GB (occurrence: GB)
  Receive Date: 20190715
  Receipt Date: 20190715
  Transmission Date: 20191004
  Serious: Yes (Other)
  Sender: FDA-Public Use
  Company Number: GB-PFIZER INC-2019294072

PATIENT
  Sex: Female

DRUGS (1)
  1. ADRENALINE [Suspect]
     Active Substance: EPINEPHRINE
     Dosage: UNK

REACTIONS (10)
  - Paronychia [Unknown]
  - Sinusitis [Unknown]
  - Pneumonia [Unknown]
  - Myxoedema [Unknown]
  - Malaise [Unknown]
  - Rhinitis [Unknown]
  - Otitis media [Unknown]
  - Paranasal cyst [Unknown]
  - Bronchitis [Unknown]
  - Nail infection [Unknown]
